FAERS Safety Report 9479149 (Version 1)
Quarter: 2013Q3

REPORT INFORMATION
  Report Type: Spontaneous
  Country: US (occurrence: US)
  Receive Date: 20130827
  Receipt Date: 20130827
  Transmission Date: 20140515
  Serious: No
  Sender: FDA-Public Use
  Company Number: US-JHP PHARMACEUTICALS, LLC-JHP201200473

PATIENT
  Age: 56 Year
  Sex: Female

DRUGS (1)
  1. DELESTROGEN [Suspect]
     Indication: HORMONE REPLACEMENT THERAPY
     Dosage: 5 MG (0.25 ML OF A 20 MG/ML VIAL), EVERY 2 WEEKS
     Route: 030

REACTIONS (1)
  - Drug ineffective [Not Recovered/Not Resolved]
